FAERS Safety Report 9390350 (Version 1)
Quarter: 2013Q3

REPORT INFORMATION
  Report Type: Spontaneous
  Country: FR (occurrence: FR)
  Receive Date: 20130709
  Receipt Date: 20130709
  Transmission Date: 20140515
  Serious: Yes (Hospitalization)
  Sender: FDA-Public Use
  Company Number: FR-ASTRAZENECA-2013SE50307

PATIENT
  Age: 21 Year
  Sex: Female

DRUGS (3)
  1. XEROQUEL [Suspect]
     Indication: BIPOLAR DISORDER
     Route: 048
     Dates: start: 2012
  2. DEPAMIDE [Concomitant]
  3. UNSPECIFIED BENZODIAZEPINE [Concomitant]

REACTIONS (3)
  - Pyelonephritis [Unknown]
  - Urethral intrinsic sphincter deficiency [Unknown]
  - Urinary retention [Unknown]
